FAERS Safety Report 4740525-2 (Version None)
Quarter: 2005Q3

REPORT INFORMATION
  Report Type: 
  Country: None (occurrence: None)
  Receive Date: 20050804
  Receipt Date: 20050415
  Transmission Date: 20060218
  Serious: No
  Sender: FDA-Public Use
  Company Number: FACT0500003

PATIENT
  Age: 45 Year
  Sex: Female
  Weight: 79.8 kg

DRUGS (2)
  1. FACTIVE [Suspect]
     Indication: RESPIRATORY TRACT INFECTION BACTERIAL
     Dosage: ORAL;  ORAL
     Route: 048
     Dates: start: 20050414, end: 20050101
  2. FACTIVE [Suspect]
     Indication: RESPIRATORY TRACT INFECTION BACTERIAL
     Dosage: ORAL;  ORAL
     Route: 048
     Dates: start: 20050414

REACTIONS (1)
  - ERYTHEMA [None]
